FAERS Safety Report 10987003 (Version 1)
Quarter: 2015Q1

REPORT INFORMATION
  Report Type: Spontaneous
  Country: US (occurrence: None)
  Receive Date: 20150313
  Receipt Date: 20150313
  Transmission Date: 20150721
  Serious: Yes (Other)
  Sender: FDA-Public Use
  Company Number: 1449466

PATIENT
  Sex: Female

DRUGS (2)
  1. XOLAIR [Suspect]
     Active Substance: OMALIZUMAB
     Indication: ASTHMA
     Dosage: 350 MG, 1 IN 2 WE, SUBCUTANEOUS
     Route: 058
     Dates: start: 20140315
  2. TRAMADOL [Concomitant]
     Active Substance: TRAMADOL

REACTIONS (4)
  - Asthma [None]
  - Bone pain [None]
  - Arthralgia [None]
  - Anxiety [None]
